FAERS Safety Report 9027721 (Version 1)
Quarter: 2013Q1

REPORT INFORMATION
  Report Type: Spontaneous
  Country: CH (occurrence: CH)
  Receive Date: 20130124
  Receipt Date: 20130124
  Transmission Date: 20140127
  Serious: Yes (Other)
  Sender: FDA-Public Use
  Company Number: CH-009507513-1301CHE008713

PATIENT
  Age: 33 Year
  Sex: Female

DRUGS (2)
  1. ISENTRESS [Suspect]
     Indication: HIV INFECTION
     Dosage: 400 MG, QD
     Route: 048
     Dates: start: 2011
  2. TRUVADA [Suspect]
     Indication: HIV INFECTION
     Dosage: 200/245 MG ONCE DAILY
     Route: 048
     Dates: start: 2011

REACTIONS (1)
  - Exposure during pregnancy [Unknown]
